FAERS Safety Report 12759497 (Version 1)
Quarter: 2016Q3

REPORT INFORMATION
  Report Type: Spontaneous
  Country: US (occurrence: US)
  Receive Date: 20160919
  Receipt Date: 20160919
  Transmission Date: 20161109
  Serious: Yes (Disabling, Other)
  Sender: FDA-Public Use
  Company Number: None

PATIENT
  Age: 52 Year
  Sex: Female
  Weight: 119.25 kg

DRUGS (7)
  1. METFORMIN [Concomitant]
     Active Substance: METFORMIN HYDROCHLORIDE
  2. CALCIUM W/VITAMIN D [Concomitant]
     Active Substance: CALCIUM\VITAMIN D
  3. DULOXETINE HCL [Concomitant]
     Active Substance: DULOXETINE HYDROCHLORIDE
  4. DOXYCYCLINE HYCLATE 100 MG [Suspect]
     Active Substance: DOXYCYCLINE HYCLATE
     Indication: EAR INFECTION
     Route: 048
     Dates: start: 20160902, end: 20160918
  5. DOXYCYCLINE HYCLATE 100 MG [Suspect]
     Active Substance: DOXYCYCLINE HYCLATE
     Indication: TOOTH INFECTION
     Route: 048
     Dates: start: 20160902, end: 20160918
  6. OMEPRAZOL [Concomitant]
     Active Substance: OMEPRAZOLE
  7. MULTI-VITAMIN [Concomitant]
     Active Substance: .ALPHA.-TOCOPHEROL ACETATE, DL-\ASCORBIC ACID\CYANOCOBALAMIN\FLUORIDE ION\FOLIC ACID\NIACIN\PYRIDOXINE\RIBOFLAVIN\THIAMINE\VITAMIN A\VITAMIN D

REACTIONS (8)
  - Diarrhoea [None]
  - Suicidal ideation [None]
  - Nausea [None]
  - Vomiting [None]
  - Abdominal discomfort [None]
  - Depression [None]
  - Anxiety [None]
  - Headache [None]

NARRATIVE: CASE EVENT DATE: 20160916
